FAERS Safety Report 6646175-5 (Version None)
Quarter: 2010Q1

REPORT INFORMATION
  Report Type: 
  Country: None (occurrence: None)
  Receive Date: 20100322
  Receipt Date: 20100322
  Transmission Date: 20100710
  Serious: No
  Sender: FDA-Public Use
  Company Number: None

PATIENT
  Age: 79 Year
  Sex: Female
  Weight: 50.3493 kg

DRUGS (5)
  1. MULTAQ [Suspect]
     Indication: ARRHYTHMIA
     Dosage: 1 TAB 2X DAY ORAL
     Route: 048
     Dates: start: 20091201
  2. LISINOPRIL [Concomitant]
  3. METAPROLOL [Concomitant]
  4. LASIX [Concomitant]
  5. ACTONEL [Concomitant]

REACTIONS (1)
  - FATIGUE [None]
